FAERS Safety Report 5708836-1 (Version None)
Quarter: 2008Q2

REPORT INFORMATION
  Report Type: 
  Country: None (occurrence: None)
  Receive Date: 20080416
  Receipt Date: 20080331
  Transmission Date: 20081010
  Serious: Yes (Hospitalization)
  Sender: FDA-Public Use
  Company Number: 2008BI006066

PATIENT
  Age: 71 Year
  Sex: Male

DRUGS (1)
  1. AVONEX [Suspect]
     Indication: MULTIPLE SCLEROSIS
     Dosage: 30 UG; QW; IM
     Route: 030
     Dates: start: 20010801

REACTIONS (3)
  - ASTHENIA [None]
  - CEREBROVASCULAR ACCIDENT [None]
  - URINARY TRACT INFECTION [None]
